FAERS Safety Report 11238861 (Version 3)
Quarter: 2016Q1

REPORT INFORMATION
  Report Type: Spontaneous
  Country: FR (occurrence: FR)
  Receive Date: 20150706
  Receipt Date: 20160218
  Transmission Date: 20160525
  Serious: Yes (Other)
  Sender: FDA-Public Use
  Company Number: FR-ACCORD-031866

PATIENT
  Age: 63 Year
  Sex: Male
  Weight: 95 kg

DRUGS (9)
  1. EMEND [Suspect]
     Active Substance: APREPITANT
     Indication: HEPATIC CANCER
     Dosage: 80 MG FROM 23-APR-2015 TO 24-APR-2015 (DAY 2 AND DAY 3).
     Route: 048
     Dates: start: 20150422
  2. AVODART [Concomitant]
     Active Substance: DUTASTERIDE
     Dosage: ONE DOSAGE FORM IN THE EVENING
     Route: 048
  3. NEFOPAM MYLAN [Concomitant]
     Active Substance: NEFOPAM
     Dosage: 20 MG/2 ML ORAL SUSPENSION
     Route: 048
  4. GEL LARMES [Concomitant]
     Dosage: EYE GEL IN SINGLE-DOSE CONTAINER?(IN THE MORNING, AT MIDDAY AND IN THE EVENING)
     Route: 047
  5. ONDANSETRON ACCORD [Suspect]
     Active Substance: ONDANSETRON
     Indication: HEPATIC CANCER
     Dosage: 4 MG/2ML
     Route: 042
     Dates: start: 20150422
  6. UROREC [Concomitant]
     Active Substance: SILODOSIN
     Dosage: ONE DOSAGE FORM IN THE EVENING
     Route: 048
  7. ELOXATIN [Suspect]
     Active Substance: OXALIPLATIN
     Indication: HEPATIC CANCER
     Dosage: LYOPHILISAT POUR PERFUSION
     Route: 042
     Dates: start: 20150422
  8. GEMCITABINE ACCORD [Suspect]
     Active Substance: GEMCITABINE HYDROCHLORIDE
     Indication: HEPATIC CANCER
     Dosage: 2000 MG
     Route: 042
     Dates: start: 20150422
  9. METHYLPREDNISOLONE MYLAN [Suspect]
     Active Substance: METHYLPREDNISOLONE
     Indication: HEPATIC CANCER
     Dosage: 40 MG POWDER FOR INJECTION
     Dates: start: 20150422

REACTIONS (2)
  - Off label use [Unknown]
  - Drug reaction with eosinophilia and systemic symptoms [Recovering/Resolving]

NARRATIVE: CASE EVENT DATE: 20150506
